FAERS Safety Report 18956706 (Version 1)
Quarter: 2021Q1

REPORT INFORMATION
  Report Type: Spontaneous
  Country: US (occurrence: US)
  Receive Date: 20210302
  Receipt Date: 20210302
  Transmission Date: 20210420
  Serious: Yes (Hospitalization)
  Sender: FDA-Public Use
  Company Number: US-BIOCODEX SA-2021000084

PATIENT

DRUGS (6)
  1. DIASTAT                            /00017001/ [Concomitant]
     Indication: PRODUCT USED FOR UNKNOWN INDICATION
  2. ONFI [Concomitant]
     Active Substance: CLOBAZAM
     Indication: PRODUCT USED FOR UNKNOWN INDICATION
  3. TOPIRAMATE. [Concomitant]
     Active Substance: TOPIRAMATE
     Indication: PRODUCT USED FOR UNKNOWN INDICATION
  4. EPIDIOLEX [Concomitant]
     Active Substance: CANNABIDIOL
     Indication: PRODUCT USED FOR UNKNOWN INDICATION
  5. PHENOBARBITAL. [Concomitant]
     Active Substance: PHENOBARBITAL
  6. DIACOMIT [Suspect]
     Active Substance: STIRIPENTOL
     Indication: EPILEPSY
     Dosage: 500 MG TWICE DAILY
     Dates: start: 20210120

REACTIONS (3)
  - Pharyngeal swelling [Unknown]
  - Product use in unapproved indication [Unknown]
  - Dyspnoea [Unknown]
